FAERS Safety Report 9819207 (Version 2)
Quarter: 2014Q1

REPORT INFORMATION
  Report Type: Report from Study
  Country: US (occurrence: US)
  Receive Date: 20140115
  Receipt Date: 20140121
  Transmission Date: 20141002
  Serious: Yes (Death)
  Sender: FDA-Public Use
  Company Number: US-ACTELION-A-US2014-93289

PATIENT
  Age: 83 Year
  Sex: Male

DRUGS (11)
  1. MACITENTAN [Suspect]
     Indication: PULMONARY ARTERIAL HYPERTENSION
     Dosage: 10 MG, QD
     Route: 048
     Dates: start: 201311, end: 20131214
  2. REVATIO [Concomitant]
  3. TYVASO [Concomitant]
  4. AMIODARONE [Concomitant]
  5. LIPITOR [Concomitant]
  6. METOPROLOL [Concomitant]
  7. PLAVIX [Concomitant]
  8. SYNTHROID [Concomitant]
  9. LASIX [Concomitant]
  10. K-DUR [Concomitant]
  11. VENTOLIN [Concomitant]

REACTIONS (5)
  - Death [Fatal]
  - Dyspnoea [Unknown]
  - Fatigue [Unknown]
  - Weight decreased [Unknown]
  - Oedema peripheral [Unknown]
